FAERS Safety Report 4280161-8 (Version None)
Quarter: 2004Q1

REPORT INFORMATION
  Report Type: 
  Country: None (occurrence: None)
  Receive Date: 20040126
  Receipt Date: 20031029
  Transmission Date: 20041129
  Serious: Yes (Hospitalization, Disabling)
  Sender: FDA-Public Use
  Company Number: A0402331A

PATIENT
  Age: 56 Year
  Sex: Male
  Weight: 138.8007 kg

DRUGS (10)
  1. CONTAC 12 HOUR [Suspect]
     Dosage: ORAL
     Route: 048
     Dates: start: 19981123
  2. CONTAC 12 HOUR [Suspect]
     Dosage: ORAL
     Route: 048
     Dates: start: 19981123
  3. ALKA-SELTZER PLUS COLD MD (FORMULATION UNKNOWN) (ALKA SELTZER-PLUS COL [Suspect]
     Dosage: ORAL
     Route: 048
     Dates: start: 19981123
  4. ORLISTAT [Concomitant]
  5. FLUOXETINE HYDROCHLORIDE [Concomitant]
  6. DOXEPIN [Concomitant]
  7. LEXXEL [Concomitant]
  8. GLIMEPIRIDE [Concomitant]
  9. LOTREL [Concomitant]
  10. CELECOXIB [Concomitant]

REACTIONS (1)
  - HAEMORRHAGIC STROKE [None]
